FAERS Safety Report 7756480-7 (Version None)
Quarter: 2011Q3

REPORT INFORMATION
  Report Type: 
  Country: None (occurrence: None)
  Receive Date: 20110901
  Receipt Date: 20110824
  Transmission Date: 20111222
  Serious: Yes (Other)
  Sender: FDA-Public Use
  Company Number: 2011029134

PATIENT
  Sex: Female
  Weight: 70.3075 kg

DRUGS (25)
  1. PROTONIX [Concomitant]
  2. TRIAZOLAM [Concomitant]
  3. RANITIDINE [Concomitant]
  4. TRIAMCINOLONE [Concomitant]
  5. METOPROLOL SUCCINATE [Concomitant]
  6. PAROXETINE HCL [Concomitant]
  7. LASIX [Concomitant]
  8. LEVOTHYROXINE SODIUM [Concomitant]
  9. ULORIC [Concomitant]
  10. LOVASTATIN [Concomitant]
  11. ATENOLOL [Concomitant]
  12. BACTRIM DS [Concomitant]
  13. TERAZOSIN HCL [Concomitant]
  14. GLIMEPIRIDE [Concomitant]
  15. HIZENTRA [Suspect]
     Indication: HYPOGAMMAGLOBULINAEMIA
     Dosage: (8 G 1X/WEEK, 4 GM 20 ML VIAL; 40 ML VIA 203 SITES SUBCUTANEOUS)
     Route: 058
     Dates: start: 20100916, end: 20110705
  16. HIZENTRA [Suspect]
     Indication: IMMUNODEFICIENCY COMMON VARIABLE
     Dosage: (8 G 1X/WEEK, 4 GM 20 ML VIAL; 40 ML VIA 203 SITES SUBCUTANEOUS)
     Route: 058
     Dates: start: 20100916, end: 20110705
  17. XYZAL [Concomitant]
  18. VITAMIN D [Concomitant]
  19. ATARAX [Concomitant]
  20. BUSPAR [Concomitant]
  21. CARAFATE [Concomitant]
  22. NEXIUM [Concomitant]
  23. ZYRTEC [Concomitant]
  24. NIFEDIPINE [Concomitant]
  25. POTASSIUM GLUCONATE TAB [Concomitant]

REACTIONS (5)
  - RENAL IMPAIRMENT [None]
  - NEPHROTIC SYNDROME [None]
  - BLOOD SODIUM DECREASED [None]
  - RASH MACULAR [None]
  - BLOOD GLUCOSE INCREASED [None]
